FAERS Safety Report 20704079 (Version 2)
Quarter: 2022Q2

REPORT INFORMATION
  Report Type: Spontaneous
  Country: SI (occurrence: SI)
  Receive Date: 20220413
  Receipt Date: 20220615
  Transmission Date: 20220720
  Serious: Yes (Disabling, Other)
  Sender: FDA-Public Use
  Company Number: SI-Gedeon Richter Plc.-2022_GR_002470

PATIENT
  Sex: Female

DRUGS (5)
  1. CARIPRAZINE HYDROCHLORIDE [Suspect]
     Active Substance: CARIPRAZINE HYDROCHLORIDE
     Indication: Schizoaffective disorder
     Dosage: UP TO 4,5 MG 1X/DAY
     Route: 048
     Dates: start: 20220217, end: 20220310
  2. ARIPIPRAZOLE [Concomitant]
     Active Substance: ARIPIPRAZOLE
     Indication: Schizoaffective disorder
     Dosage: 5 MG, QD
     Route: 048
  3. ZOLRIX [Concomitant]
     Indication: Schizoaffective disorder
     Dosage: 15 MG, QD
     Route: 048
  4. LAMICTAL [Concomitant]
     Active Substance: LAMOTRIGINE
     Indication: Schizoaffective disorder
     Dosage: 50 MG, QD
     Route: 048
  5. VENLAFAXINE HYDROCHLORIDE [Concomitant]
     Active Substance: VENLAFAXINE HYDROCHLORIDE
     Indication: Schizoaffective disorder
     Dosage: 225 MG, QD
     Route: 048

REACTIONS (2)
  - Tolosa-Hunt syndrome [Recovered/Resolved]
  - Off label use [Unknown]

NARRATIVE: CASE EVENT DATE: 20220217
